FAERS Safety Report 6218564-4 (Version None)
Quarter: 2009Q2

REPORT INFORMATION
  Report Type: 
  Country: None (occurrence: None)
  Receive Date: 20090608
  Receipt Date: 20090604
  Transmission Date: 20091009
  Serious: Yes (Death)
  Sender: FDA-Public Use
  Company Number: PHEH2009US05694

PATIENT
  Sex: Female

DRUGS (3)
  1. ZELNORM [Suspect]
     Indication: DIARRHOEA
     Dosage: UNK, UNK
  2. OTHER NERVOUS SYSTEM DRUGS [Suspect]
     Dosage: UNK
  3. DARVOCET-N 100 [Concomitant]
     Indication: PAIN

REACTIONS (1)
  - OVERDOSE [None]
